FAERS Safety Report 17888665 (Version 1)
Quarter: 2020Q2

REPORT INFORMATION
  Report Type: Spontaneous
  Country: US (occurrence: US)
  Receive Date: 20200611
  Receipt Date: 20200611
  Transmission Date: 20200714
  Serious: No
  Sender: FDA-Public Use
  Company Number: None

PATIENT
  Age: 44 Year
  Sex: Male

DRUGS (1)
  1. MYCOPHENOLATE MOFETIL CAP 250MG [Suspect]
     Active Substance: MYCOPHENOLATE MOFETIL
     Route: 048
     Dates: start: 202006, end: 202006

REACTIONS (4)
  - Nausea [None]
  - Vomiting [None]
  - Abdominal discomfort [None]
  - Diarrhoea [None]

NARRATIVE: CASE EVENT DATE: 20200611
